FAERS Safety Report 6601888-6 (Version None)
Quarter: 2010Q1

REPORT INFORMATION
  Report Type: 
  Country: None (occurrence: None)
  Receive Date: 20100225
  Receipt Date: 20100215
  Transmission Date: 20100710
  Serious: Yes (Other)
  Sender: FDA-Public Use
  Company Number: US-JNJCH-2010003264

PATIENT
  Age: 76 Year
  Sex: Female
  Weight: 63.1 kg

DRUGS (9)
  1. ROLAIDS TAB [Suspect]
     Indication: ABDOMINAL DISCOMFORT
     Dosage: TEXT:ONE TABLET; 3 TIMES DAILY OR AS NEEDED
     Route: 048
  2. NEXIUM [Concomitant]
     Indication: GASTROOESOPHAGEAL REFLUX DISEASE
     Dosage: TEXT:ONE DAILY
     Route: 048
  3. CALCIUM [Concomitant]
     Indication: OSTEOPOROSIS
     Route: 048
  4. VITAMIN D [Concomitant]
     Indication: VITAMIN SUPPLEMENTATION
     Dosage: TEXT:UNSPECIFIED ONCE A YEAR
     Route: 042
  5. QUININE SULFATE [Concomitant]
     Indication: PAIN IN EXTREMITY
     Dosage: TEXT:ONE DAILY
     Route: 048
  6. KLONOPIN [Concomitant]
     Indication: PAIN IN EXTREMITY
     Route: 048
  7. VITAMINS [Concomitant]
     Indication: VITAMIN SUPPLEMENTATION
     Dosage: TEXT:ONE DAILY
     Route: 048
  8. ARICEPT [Concomitant]
     Indication: MEMORY IMPAIRMENT
     Dosage: TEXT:ONE DAILY
     Route: 048
  9. COUMADIN [Concomitant]
     Indication: ANTICOAGULANT THERAPY
     Dosage: TEXT:UNSPECIFIED
     Route: 065

REACTIONS (6)
  - ABDOMINAL PAIN UPPER [None]
  - ANGIOPATHY [None]
  - DIARRHOEA [None]
  - NAUSEA [None]
  - VOMITING [None]
  - WEIGHT DECREASED [None]
